FAERS Safety Report 24762384 (Version 2)
Quarter: 2025Q3

REPORT INFORMATION
  Report Type: Spontaneous
  Country: US (occurrence: US)
  Receive Date: 20241221
  Receipt Date: 20250810
  Transmission Date: 20251020
  Serious: Yes (Death, Hospitalization, Other)
  Sender: ALEXION PHARMACEUTICALS
  Company Number: US-ASTRAZENECA-202412USA016419US

PATIENT
  Age: 57 Year
  Sex: Female

DRUGS (9)
  1. SEROQUEL [Suspect]
     Active Substance: QUETIAPINE FUMARATE
  2. INSULIN NOS [Suspect]
     Active Substance: INSULIN NOS
  3. AMITRIPTYLINE [Suspect]
     Active Substance: AMITRIPTYLINE
  4. ARIPIPRAZOLE [Suspect]
     Active Substance: ARIPIPRAZOLE
  5. GABAPENTIN [Suspect]
     Active Substance: GABAPENTIN
  6. ROPINIROLE [Suspect]
     Active Substance: ROPINIROLE
  7. SUMATRIPTAN [Suspect]
     Active Substance: SUMATRIPTAN
  8. VENLAFAXINE [Suspect]
     Active Substance: VENLAFAXINE HYDROCHLORIDE
  9. CYCLOBENZAPRINE [Suspect]
     Active Substance: CYCLOBENZAPRINE

REACTIONS (2)
  - Toxicity to various agents [Fatal]
  - Completed suicide [Fatal]
